FAERS Safety Report 9321135 (Version 1)
Quarter: 2013Q2

REPORT INFORMATION
  Report Type: Spontaneous
  Country: US (occurrence: None)
  Receive Date: 20130528
  Receipt Date: 20130528
  Transmission Date: 20140414
  Serious: Yes (Death)
  Sender: FDA-Public Use
  Company Number: 2012AP003438

PATIENT
  Age: 54 Year
  Sex: Male
  Weight: 51.7 kg

DRUGS (2)
  1. FERRIPROX [Suspect]
     Indication: THALASSAEMIA
     Route: 048
     Dates: start: 20120203
  2. FERRIPROX [Suspect]
     Indication: IRON OVERLOAD
     Route: 048
     Dates: start: 20120203

REACTIONS (2)
  - Accident [None]
  - Multiple injuries [None]
